FAERS Safety Report 15956010 (Version 1)
Quarter: 2019Q1

REPORT INFORMATION
  Report Type: Spontaneous
  Country: US (occurrence: US)
  Receive Date: 20190212
  Receipt Date: 20190212
  Transmission Date: 20190417
  Serious: No
  Sender: FDA-Public Use
  Company Number: None

PATIENT
  Age: 59 Year
  Sex: Female
  Weight: 103.5 kg

DRUGS (16)
  1. BI-PAP MACHINE [Concomitant]
     Active Substance: DEVICE
  2. CELECOXIB. [Concomitant]
     Active Substance: CELECOXIB
  3. CINNAMON WITH CHROMIUM [Concomitant]
  4. IMIPRAMINE HCL 10MG [Suspect]
     Active Substance: IMIPRAMINE HYDROCHLORIDE
     Indication: IRRITABLE BOWEL SYNDROME
     Dosage: ?          QUANTITY:30 TABLET(S);?
     Route: 048
     Dates: start: 20190108, end: 20190202
  5. FLONASE [Concomitant]
     Active Substance: FLUTICASONE PROPIONATE
  6. VITAMIN B COMPLEX [Concomitant]
     Active Substance: CYANOCOBALAMIN\DEXPANTHENOL\NIACINAMIDE\PYRIDOXINE HYDROCHLORIDE\RIBOFLAVIN 5^-PHOSPHATE SODIUM\THIAMINE HYDROCHLORIDE\VITAMIN B COMPLEX
  7. ESTRADIAL [Concomitant]
  8. CALCIUM WITH MAGNESIUM AND ZINC [Concomitant]
  9. NASAL SPRAY [Concomitant]
     Active Substance: UNSPECIFIED INGREDIENT
  10. MULTI-VITAMIN [Concomitant]
     Active Substance: .ALPHA.-TOCOPHEROL ACETATE, DL-\ASCORBIC ACID\CYANOCOBALAMIN\FLUORIDE ION\FOLIC ACID\NIACIN\PYRIDOXINE\RIBOFLAVIN\THIAMINE\VITAMIN A\VITAMIN D
  11. CANE [Concomitant]
  12. BUPROPION. [Concomitant]
     Active Substance: BUPROPION
  13. LYRICA [Concomitant]
     Active Substance: PREGABALIN
  14. MORPHINE [Concomitant]
     Active Substance: MORPHINE
  15. BLOOD PRESSURE MONITOR [Concomitant]
  16. HYDROCODONE [Concomitant]
     Active Substance: HYDROCODONE

REACTIONS (11)
  - Balance disorder [None]
  - Lip exfoliation [None]
  - Hypoaesthesia oral [None]
  - Muscle spasms [None]
  - Tremor [None]
  - Neuralgia [None]
  - Coordination abnormal [None]
  - Cognitive disorder [None]
  - Back pain [None]
  - Irritability [None]
  - Dizziness [None]

NARRATIVE: CASE EVENT DATE: 20190125
